FAERS Safety Report 8191921-5 (Version None)
Quarter: 2012Q1

REPORT INFORMATION
  Report Type: 
  Country: None (occurrence: None)
  Receive Date: 20120307
  Receipt Date: 20120229
  Transmission Date: 20120608
  Serious: Yes (Other)
  Sender: FDA-Public Use
  Company Number: PHHY2012JP009828

PATIENT
  Sex: Male

DRUGS (1)
  1. LAMISIL [Suspect]
     Indication: TINEA CAPITIS
     Dosage: 125 MG, UNK
     Route: 048
     Dates: start: 20110701, end: 20120203

REACTIONS (2)
  - TOTAL CHOLESTEROL/HDL RATIO INCREASED [None]
  - BLOOD TRIGLYCERIDES INCREASED [None]
